FAERS Safety Report 4338384-5 (Version None)
Quarter: 2004Q2

REPORT INFORMATION
  Report Type: 
  Country: None (occurrence: None)
  Receive Date: 20040407
  Receipt Date: 20040329
  Transmission Date: 20050107
  Serious: Yes (Death)
  Sender: FDA-Public Use
  Company Number: 2004AP01295

PATIENT
  Age: 47 Year
  Sex: Female

DRUGS (12)
  1. IRESSA [Suspect]
     Indication: LUNG ADENOCARCINOMA
     Dosage: 250 MG DAILY PO
     Route: 048
     Dates: start: 20030707, end: 20030729
  2. IRESSA [Suspect]
     Indication: NON-SMALL CELL LUNG CANCER
     Dosage: 250 MG DAILY PO
     Route: 048
     Dates: start: 20030707, end: 20030729
  3. URSO [Concomitant]
  4. NOLVADEX [Concomitant]
  5. MS CONTIN [Concomitant]
  6. MAGNESIUM OXIDE [Concomitant]
  7. MUCOSTA [Concomitant]
  8. PICIBANIL [Concomitant]
  9. CARBOPLATIN [Concomitant]
  10. DOCETAXEL [Concomitant]
  11. GEMCITABINE [Concomitant]
  12. RADIATION THERAPY [Concomitant]

REACTIONS (8)
  - CARDIAC FAILURE [None]
  - INFUSION RELATED REACTION [None]
  - INTERSTITIAL LUNG DISEASE [None]
  - LUNG CONSOLIDATION [None]
  - PLEURAL EFFUSION [None]
  - PNEUMONIA [None]
  - PYREXIA [None]
  - RESPIRATORY FAILURE [None]
